FAERS Safety Report 13476539 (Version 1)
Quarter: 2017Q2

REPORT INFORMATION
  Report Type: Report from Study
  Country: FR (occurrence: FR)
  Receive Date: 20170425
  Receipt Date: 20170425
  Transmission Date: 20170830
  Serious: Yes (Hospitalization)
  Sender: FDA-Public Use
  Company Number: FR-PFIZER INC-2017171958

PATIENT
  Age: 55 Year
  Sex: Female

DRUGS (7)
  1. PALBOCICLIB [Suspect]
     Active Substance: PALBOCICLIB
     Dosage: 100 MG, DAILY
     Route: 048
     Dates: start: 20170206
  2. FASLODEX [Concomitant]
     Active Substance: FULVESTRANT
     Dosage: UNK
     Route: 030
     Dates: start: 20161212
  3. OXYCONTIN [Concomitant]
     Active Substance: OXYCODONE HYDROCHLORIDE
     Dosage: 20 MG, 2X/DAY
     Dates: start: 20161129
  4. SOLUPRED /00016201/ [Concomitant]
     Active Substance: PREDNISOLONE
     Dosage: 40 MG, 2X/DAY
     Dates: start: 20161129
  5. DELURSAN [Concomitant]
     Active Substance: URSODIOL
     Dosage: 500 MG, 2X/DAY
     Dates: start: 20161129
  6. PALBOCICLIB [Suspect]
     Active Substance: PALBOCICLIB
     Indication: BREAST CANCER METASTATIC
     Dosage: 125 MG, DAILY
     Route: 048
     Dates: start: 20161212, end: 20170205
  7. PANTOPRAZOLE [Concomitant]
     Active Substance: PANTOPRAZOLE
     Dosage: 20 MG, DAILY

REACTIONS (7)
  - Neutropenia [Recovering/Resolving]
  - Aspartate aminotransferase increased [Unknown]
  - Alanine aminotransferase increased [Unknown]
  - Thrombocytopenia [Recovering/Resolving]
  - Creatinine renal clearance decreased [Unknown]
  - General physical health deterioration [Unknown]
  - Anaemia [Recovering/Resolving]

NARRATIVE: CASE EVENT DATE: 20161214
